FAERS Safety Report 4597843-0 (Version None)
Quarter: 2005Q1

REPORT INFORMATION
  Report Type: 
  Country: None (occurrence: None)
  Receive Date: 20050301
  Receipt Date: 20050215
  Transmission Date: 20050727
  Serious: No
  Sender: FDA-Public Use
  Company Number: ST-2005-008204

PATIENT
  Age: 72 Year
  Sex: Female
  Weight: 62 kg

DRUGS (5)
  1. OLMETEC [Suspect]
     Indication: HYPERTENSION
     Dosage: 20 MG QD PO
     Route: 048
     Dates: start: 20041210, end: 20041230
  2. NORVASC [Concomitant]
  3. TENORMIN [Concomitant]
  4. LIPANTIL [Concomitant]
  5. BLOPRESS [Concomitant]

REACTIONS (3)
  - BRADYCARDIA [None]
  - DIZZINESS [None]
  - FATIGUE [None]
